FAERS Safety Report 6674698-1 (Version None)
Quarter: 2010Q2

REPORT INFORMATION
  Report Type: 
  Country: None (occurrence: None)
  Receive Date: 20100409
  Receipt Date: 20100331
  Transmission Date: 20101027
  Serious: Yes (Hospitalization, Other)
  Sender: FDA-Public Use
  Company Number: US-JNJFOC-20100106478

PATIENT
  Sex: Male
  Weight: 48.99 kg

DRUGS (3)
  1. REMICADE [Suspect]
     Indication: CROHN'S DISEASE
     Dosage: 13 INFUSIONS TOTAL
     Route: 042
  2. REMICADE [Suspect]
     Dosage: 1 PRIOR TO BASELINE
     Route: 042
  3. PREDNISONE TAB [Suspect]
     Indication: CROHN'S DISEASE

REACTIONS (2)
  - ABDOMINAL PAIN [None]
  - CYTOMEGALOVIRUS COLITIS [None]
